FAERS Safety Report 10037676 (Version 1)
Quarter: 2014Q1

REPORT INFORMATION
  Report Type: Spontaneous
  Country: US (occurrence: None)
  Receive Date: 20140325
  Receipt Date: 20140325
  Transmission Date: 20141002
  Serious: Yes (Other)
  Sender: FDA-Public Use
  Company Number: None

PATIENT
  Age: 14 Year
  Sex: Male
  Weight: 68.49 kg

DRUGS (5)
  1. ABILIFY [Suspect]
     Dosage: 2.5 MG (1/2 TAB) BID ORAL
     Route: 048
     Dates: start: 20140318, end: 20140319
  2. TYLENOL [Concomitant]
  3. CELEBREX [Concomitant]
  4. FAMOTIDINE [Concomitant]
  5. LITHIUM CARBONATE [Concomitant]

REACTIONS (5)
  - Anger [None]
  - Irritability [None]
  - Loss of consciousness [None]
  - Headache [None]
  - Condition aggravated [None]
